FAERS Safety Report 8557902-4 (Version None)
Quarter: 2012Q3

REPORT INFORMATION
  Report Type: 
  Country: None (occurrence: None)
  Receive Date: 20120801
  Receipt Date: 20120723
  Transmission Date: 20120928
  Serious: Yes (Other)
  Sender: FDA-Public Use
  Company Number: CA-JNJFOC-20120714587

PATIENT
  Sex: Female
  Weight: 51 kg

DRUGS (11)
  1. CORTICOSTEROID [Concomitant]
     Route: 055
  2. IRON [Concomitant]
     Route: 065
  3. NASONEX [Concomitant]
     Route: 065
  4. IMURAN [Concomitant]
     Route: 048
  5. REMICADE [Suspect]
     Indication: CROHN'S DISEASE
     Dosage: 3RD INDUCTION DOSE
     Route: 042
  6. VITAMIN D [Concomitant]
     Route: 065
  7. SINGULAIR [Concomitant]
     Route: 065
  8. REMICADE [Suspect]
     Route: 042
  9. SYNTHROID [Concomitant]
     Route: 065
  10. MULTIVITAMIN [Concomitant]
     Route: 065
  11. CALCIUM [Concomitant]
     Route: 065

REACTIONS (3)
  - COUGH [None]
  - CROHN'S DISEASE [None]
  - KERATITIS [None]
